FAERS Safety Report 5278200-0 (Version None)
Quarter: 2007Q1

REPORT INFORMATION
  Report Type: 
  Country: None (occurrence: None)
  Receive Date: 20061213
  Receipt Date: 20060524
  Transmission Date: 20070707
  Serious: Yes (Hospitalization)
  Sender: FDA-Public Use
  Company Number: 2006UW10185

PATIENT
  Age: 62 Year
  Sex: Female

DRUGS (5)
  1. SEROQUEL [Suspect]
     Indication: MANIA
     Dosage: 25 MG TID PO
     Route: 048
  2. DEPAKOTE [Suspect]
     Dosage: 500 MG DAILY
  3. PREDNISONE [Suspect]
     Dosage: 60 MG DAILY
  4. AMBIEN [Suspect]
     Dosage: 10 MG DAILY
  5. XANAX [Suspect]
     Dosage: 0.25 MG TID

REACTIONS (1)
  - ATRIAL FIBRILLATION [None]
